FAERS Safety Report 16904337 (Version 5)
Quarter: 2019Q4

REPORT INFORMATION
  Report Type: Spontaneous
  Country: JP (occurrence: JP)
  Receive Date: 20191010
  Receipt Date: 20191118
  Transmission Date: 20200122
  Serious: Yes (Death, Other)
  Sender: FDA-Public Use
  Company Number: JP-JNJFOC-20190923430

PATIENT
  Age: 90 Year
  Sex: Male

DRUGS (3)
  1. APALUTAMIDE [Suspect]
     Active Substance: APALUTAMIDE
     Route: 048
     Dates: start: 20190911
  2. APALUTAMIDE [Suspect]
     Active Substance: APALUTAMIDE
     Indication: HORMONE-REFRACTORY PROSTATE CANCER
     Route: 048
     Dates: start: 20190828, end: 20190910
  3. LEUPLIN [Concomitant]
     Active Substance: LEUPROLIDE ACETATE
     Indication: PRODUCT USED FOR UNKNOWN INDICATION
     Route: 058

REACTIONS (6)
  - Weight decreased [Unknown]
  - Dehydration [Unknown]
  - Prostatic specific antigen increased [Unknown]
  - Sudden death [Fatal]
  - Feeding disorder [Unknown]
  - Malaise [Fatal]

NARRATIVE: CASE EVENT DATE: 2019
